FAERS Safety Report 4353549-4 (Version None)
Quarter: 2004Q2

REPORT INFORMATION
  Report Type: 
  Country: None (occurrence: None)
  Receive Date: 20040430
  Receipt Date: 20040427
  Transmission Date: 20050107
  Serious: Yes (Life-Threatening)
  Sender: FDA-Public Use
  Company Number: 2004AP01894

PATIENT
  Age: 70 Year
  Sex: Male

DRUGS (5)
  1. IRESSA [Suspect]
     Indication: LUNG ADENOCARCINOMA
     Dosage: 250 MG DAILY PO
     Route: 048
     Dates: start: 20020930, end: 20021016
  2. IRESSA [Suspect]
     Indication: NON-SMALL CELL LUNG CANCER
     Dosage: 250 MG DAILY PO
     Route: 048
     Dates: start: 20020930, end: 20021016
  3. IRESSA [Suspect]
     Indication: LUNG ADENOCARCINOMA
     Dosage: 250 MG QOD PO
     Route: 048
     Dates: start: 20021111
  4. IRESSA [Suspect]
     Indication: NON-SMALL CELL LUNG CANCER
     Dosage: 250 MG QOD PO
     Route: 048
     Dates: start: 20021111
  5. RADIATION THERAPY [Concomitant]

REACTIONS (10)
  - CACHEXIA [None]
  - COMPUTERISED TOMOGRAM ABNORMAL [None]
  - DERMATITIS [None]
  - DYSPNOEA [None]
  - INTERSTITIAL LUNG DISEASE [None]
  - LUNG NEOPLASM MALIGNANT [None]
  - MALIGNANT NEOPLASM PROGRESSION [None]
  - NASOPHARYNGITIS [None]
  - PERFORMANCE STATUS DECREASED [None]
  - PNEUMONIA [None]
